FAERS Safety Report 16273844 (Version 1)
Quarter: 2019Q2

REPORT INFORMATION
  Report Type: Spontaneous
  Country: US (occurrence: US)
  Receive Date: 20190506
  Receipt Date: 20190506
  Transmission Date: 20190711
  Serious: Yes (Other)
  Sender: FDA-Public Use
  Company Number: US-HORIZON-ACT-0123-2019

PATIENT
  Age: 71 Year
  Sex: Female

DRUGS (1)
  1. ACTIMMUNE [Suspect]
     Active Substance: INTERFERON GAMMA-1B
     Indication: MYCOBACTERIAL INFECTION
     Dosage: 12 3X/W

REACTIONS (2)
  - Off label use [Unknown]
  - Eye operation [Unknown]
